FAERS Safety Report 19172532 (Version 3)
Quarter: 2021Q2

REPORT INFORMATION
  Report Type: Spontaneous
  Country: FR (occurrence: FR)
  Receive Date: 20210423
  Receipt Date: 20210507
  Transmission Date: 20210717
  Serious: Yes (Life-Threatening, Hospitalization, Other)
  Sender: FDA-Public Use
  Company Number: FR-AUROBINDO-AUR-APL-2021-016377

PATIENT
  Age: 38 Year
  Sex: Male

DRUGS (8)
  1. CLOPIDOGREL [Suspect]
     Active Substance: CLOPIDOGREL BISULFATE
     Indication: ACUTE MYOCARDIAL INFARCTION
  2. METALYSE [Concomitant]
     Active Substance: TENECTEPLASE
     Indication: FIBRINOLYSIS
     Dosage: 10000 INTERNATIONAL UNIT
     Route: 065
  3. CLOPIDOGREL [Suspect]
     Active Substance: CLOPIDOGREL BISULFATE
     Indication: CORONARY ARTERY OCCLUSION
     Dosage: UNK, LOADING DOSE
     Route: 065
  4. ENOXAPARINE [Suspect]
     Active Substance: ENOXAPARIN
     Indication: CORONARY ARTERY OCCLUSION
     Dosage: UNK, LOADING DOSE
     Route: 065
  5. ENOXAPARINE [Suspect]
     Active Substance: ENOXAPARIN
     Indication: ACUTE MYOCARDIAL INFARCTION
  6. ASPIRIN. [Suspect]
     Active Substance: ASPIRIN
     Indication: ACUTE MYOCARDIAL INFARCTION
  7. ASPIRIN. [Suspect]
     Active Substance: ASPIRIN
     Indication: CORONARY ARTERY OCCLUSION
     Dosage: UNK, LOADING DOSE
     Route: 065
  8. DOBUTAMINE [Concomitant]
     Active Substance: DOBUTAMINE HYDROCHLORIDE
     Indication: POSITIVE CARDIAC INOTROPIC EFFECT
     Dosage: UNK
     Route: 065

REACTIONS (1)
  - Coronary artery dissection [Unknown]
